FAERS Safety Report 5264592-5 (Version None)
Quarter: 2007Q1

REPORT INFORMATION
  Report Type: 
  Country: None (occurrence: None)
  Receive Date: 20061213
  Receipt Date: 20041123
  Transmission Date: 20070707
  Serious: Yes (Other)
  Sender: FDA-Public Use
  Company Number: 2004UW22116

PATIENT
  Age: 71 Year
  Sex: Male
  Weight: 70.306 kg

DRUGS (10)
  1. IRESSA [Suspect]
     Indication: NON-SMALL CELL LUNG CANCER
     Dosage: 250 MG QD PO
     Route: 048
     Dates: start: 20041019
  2. CELEBREX [Concomitant]
  3. PREVACID [Concomitant]
  4. QUININE SULFA [Concomitant]
  5. FLONASE [Concomitant]
  6. CALCINAPRIL [Concomitant]
  7. PRAVACHOL [Concomitant]
  8. LISINOPRIL [Concomitant]
  9. ASPIRIN [Concomitant]
  10. VITAMIN CAP [Concomitant]

REACTIONS (3)
  - DIARRHOEA [None]
  - RASH [None]
  - VISION BLURRED [None]
